FAERS Safety Report 6378635-9 (Version None)
Quarter: 2009Q3

REPORT INFORMATION
  Report Type: 
  Country: None (occurrence: None)
  Receive Date: 20090928
  Receipt Date: 20090922
  Transmission Date: 20100115
  Serious: Yes (Other)
  Sender: FDA-Public Use
  Company Number: US-AMGEN-QUU365874

PATIENT
  Sex: Male

DRUGS (16)
  1. EPOGEN [Suspect]
     Indication: DIALYSIS
     Dates: start: 20070801
  2. EPOGEN [Suspect]
     Indication: RENAL FAILURE CHRONIC
  3. CALCITRIOL [Concomitant]
  4. CELLCEPT [Concomitant]
     Route: 048
  5. CLONIDINE [Concomitant]
  6. CLONIDINE [Concomitant]
  7. LOVAZA [Concomitant]
  8. HUMALOG [Concomitant]
  9. HUMULIN R [Concomitant]
  10. HYDRALAZINE [Concomitant]
  11. MINIPRESS [Concomitant]
     Route: 048
  12. NEPHRO-VITE [Concomitant]
     Route: 048
  13. OMEPRAZOLE [Concomitant]
  14. RENAGEL [Concomitant]
  15. TEMAZEPAM [Concomitant]
  16. URSODIOL [Concomitant]
     Route: 048

REACTIONS (1)
  - DRUG INEFFECTIVE [None]
